FAERS Safety Report 6698811-5 (Version None)
Quarter: 2010Q2

REPORT INFORMATION
  Report Type: 
  Country: None (occurrence: None)
  Receive Date: 20100427
  Receipt Date: 20100419
  Transmission Date: 20101027
  Serious: Yes (Other)
  Sender: FDA-Public Use
  Company Number: PHHY2010BR25357

PATIENT
  Sex: Female

DRUGS (1)
  1. CODATEN [Suspect]
     Dosage: 1 TABLET (50 MG)
     Route: 048

REACTIONS (2)
  - EYE SWELLING [None]
  - OEDEMA PERIPHERAL [None]
